FAERS Safety Report 10948135 (Version 1)
Quarter: 2015Q1

REPORT INFORMATION
  Report Type: Spontaneous
  Country: US (occurrence: None)
  Receive Date: 20150225
  Receipt Date: 20150225
  Transmission Date: 20150721
  Serious: Yes (Other)
  Sender: FDA-Public Use
  Company Number: 2014-US-003030

PATIENT
  Age: 74 Year
  Sex: Male

DRUGS (2)
  1. PRIALT [Suspect]
     Active Substance: ZICONOTIDE ACETATE
     Indication: PAIN
     Route: 037
  2. DILAUDID [Suspect]
     Active Substance: HYDROMORPHONE HYDROCHLORIDE
     Indication: PAIN
     Route: 037

REACTIONS (8)
  - Hot flush [None]
  - Drug ineffective [None]
  - Insomnia [None]
  - Toxicity to various agents [None]
  - Diarrhoea [None]
  - Device issue [None]
  - Urinary retention [None]
  - Chills [None]

NARRATIVE: CASE EVENT DATE: 20140227
